FAERS Safety Report 15243806 (Version 1)
Quarter: 2018Q3

REPORT INFORMATION
  Report Type: Report from Study
  Country: US (occurrence: US)
  Receive Date: 20180806
  Receipt Date: 20180806
  Transmission Date: 20181010
  Serious: Yes (Other)
  Sender: FDA-Public Use
  Company Number: US-EMD SERONO-E2B_90053543

PATIENT
  Sex: Female

DRUGS (1)
  1. REBIF [Suspect]
     Active Substance: INTERFERON BETA-1A
     Indication: PRODUCT USED FOR UNKNOWN INDICATION
     Route: 058
     Dates: start: 20180228, end: 201807

REACTIONS (3)
  - Visual impairment [Not Recovered/Not Resolved]
  - Eye pain [Not Recovered/Not Resolved]
  - Dry eye [Not Recovered/Not Resolved]
